FAERS Safety Report 10239978 (Version 1)
Quarter: 2014Q2

REPORT INFORMATION
  Report Type: Spontaneous
  Country: JP (occurrence: JP)
  Receive Date: 20140616
  Receipt Date: 20140616
  Transmission Date: 20141212
  Serious: Yes (Other)
  Sender: FDA-Public Use
  Company Number: JP-009507513-1406JPN006831

PATIENT
  Age: 67 Year
  Sex: Male

DRUGS (7)
  1. REBETOL [Suspect]
     Indication: CHRONIC HEPATITIS C
     Dosage: 800 MG, 1 IN 1 DAY
     Route: 048
     Dates: start: 20140306
  2. PEGINTRON [Suspect]
     Indication: CHRONIC HEPATITIS C
     Dosage: 1.5 MICROGRAM PER KILOGRAM, 1 IN 1 WEEK
     Route: 058
     Dates: start: 20140506
  3. SIMEPREVIR [Suspect]
     Indication: CHRONIC HEPATITIS C
     Dosage: 100 MG, 1 IN 1 DAY
     Route: 048
     Dates: start: 20140306, end: 20140408
  4. FAMOTIDINE [Concomitant]
     Dosage: 40 MG, 1 IN 1 DAY
     Route: 048
     Dates: start: 20140410
  5. XYZAL [Concomitant]
     Dosage: 10 MG, 1 IN1 DAY
     Route: 048
     Dates: start: 20140408
  6. VITAMINS (UNSPECIFIED) [Concomitant]
     Indication: CHRONIC HEPATITIS C
     Dosage: A, D AND PREPARATIONS
     Dates: start: 20140306
  7. LOXONIN [Concomitant]
     Indication: PYREXIA
     Dosage: 60 MG, IN 1 AS NECESSARY
     Route: 048
     Dates: start: 20140306

REACTIONS (6)
  - Jaundice [Unknown]
  - Blood bilirubin increased [Unknown]
  - Platelet count decreased [Unknown]
  - Drug eruption [Unknown]
  - Haemoglobin decreased [Unknown]
  - Blood creatinine decreased [Unknown]
